FAERS Safety Report 5737611-7 (Version None)
Quarter: 2008Q2

REPORT INFORMATION
  Report Type: 
  Country: None (occurrence: None)
  Receive Date: 20080512
  Receipt Date: 20080512
  Transmission Date: 20081010
  Serious: Yes (Hospitalization)
  Sender: FDA-Public Use
  Company Number: None

PATIENT
  Age: 52 Year
  Sex: Male
  Weight: 81.6 kg

DRUGS (6)
  1. OXALIPLATIN [Suspect]
     Indication: LUNG NEOPLASM MALIGNANT
     Dosage: 85MG/M2 DAY 1+15/Q 28 D IV
     Route: 042
     Dates: start: 20080303, end: 20080322
  2. DOCETAXEL [Suspect]
     Indication: LUNG NEOPLASM MALIGNANT
     Dosage: 30 MG/M2 DAY 1+8/Q28D IV
     Route: 042
     Dates: start: 20080303, end: 20080322
  3. WARFARIN SODIUM [Concomitant]
  4. LEXAPRO [Concomitant]
  5. OXYCONTIN [Concomitant]
  6. DECADRON [Concomitant]

REACTIONS (3)
  - CLOSTRIDIUM DIFFICILE COLITIS [None]
  - DEHYDRATION [None]
  - NAUSEA [None]
